FAERS Safety Report 10280320 (Version 2)
Quarter: 2014Q4

REPORT INFORMATION
  Report Type: Spontaneous
  Country: AT (occurrence: AT)
  Receive Date: 20140707
  Receipt Date: 20141223
  Transmission Date: 20150528
  Serious: Yes (Other)
  Sender: FDA-Public Use
  Company Number: AT-ELI_LILLY_AND_COMPANY-AT201406009089

PATIENT
  Age: 52 Year
  Sex: Female

DRUGS (18)
  1. ZYPREXA [Suspect]
     Active Substance: OLANZAPINE
     Indication: PRODUCT USED FOR UNKNOWN INDICATION
     Dosage: 20 MG, UNKNOWN
     Route: 065
     Dates: start: 20130910, end: 20131101
  2. SEROQUEL XR [Interacting]
     Active Substance: QUETIAPINE FUMARATE
     Indication: PRODUCT USED FOR UNKNOWN INDICATION
     Dosage: 200 MG, UNKNOWN
     Route: 065
  3. SEROQUEL [Suspect]
     Active Substance: QUETIAPINE FUMARATE
     Indication: PRODUCT USED FOR UNKNOWN INDICATION
     Dosage: 200 MG, UNKNOWN
     Route: 065
     Dates: start: 20130907, end: 20130907
  4. DOMINAL FORTE [Interacting]
     Active Substance: PROTHIPENDYL HYDROCHLORIDE
     Indication: PRODUCT USED FOR UNKNOWN INDICATION
     Dosage: 80 MG, UNKNOWN
     Route: 065
  5. SEROQUEL XR [Interacting]
     Active Substance: QUETIAPINE FUMARATE
     Dosage: 550 MG, UNKNOWN
     Route: 065
     Dates: start: 20130913, end: 20130913
  6. SEROQUEL XR [Interacting]
     Active Substance: QUETIAPINE FUMARATE
     Dosage: 600 MG, UNKNOWN
     Route: 065
     Dates: start: 20130914, end: 20130914
  7. SEROQUEL XR [Interacting]
     Active Substance: QUETIAPINE FUMARATE
     Dosage: 400 MG, UNKNOWN
     Route: 065
     Dates: start: 20130922, end: 20130924
  8. URSOFALK [Suspect]
     Active Substance: URSODIOL
     Indication: PRODUCT USED FOR UNKNOWN INDICATION
     Dosage: 500 MG, UNKNOWN
     Route: 065
  9. PSYCHOPAX [Interacting]
     Active Substance: DIAZEPAM
     Indication: PRODUCT USED FOR UNKNOWN INDICATION
     Dosage: 20 MG, UNKNOWN
     Route: 065
  10. SEROQUEL XR [Interacting]
     Active Substance: QUETIAPINE FUMARATE
     Dosage: 400 MG, UNKNOWN
     Route: 065
     Dates: start: 20130908, end: 20130911
  11. SEROQUEL XR [Interacting]
     Active Substance: QUETIAPINE FUMARATE
     Dosage: 700 MG, UNKNOWN
     Route: 065
     Dates: start: 20130915, end: 20130915
  12. SEROQUEL XR [Interacting]
     Active Substance: QUETIAPINE FUMARATE
     Dosage: 500 MG, UNKNOWN
     Route: 065
     Dates: start: 20130917, end: 20130921
  13. SEROQUEL XR [Interacting]
     Active Substance: QUETIAPINE FUMARATE
     Dosage: 200 MG, EACH EVENING
     Route: 065
     Dates: start: 20130925
  14. NOZINAN                            /00038601/ [Suspect]
     Active Substance: LEVOMEPROMAZINE
     Indication: PRODUCT USED FOR UNKNOWN INDICATION
     Dosage: 100 MG, QD
     Route: 065
     Dates: start: 20130909, end: 20130916
  15. PRAXITEN [Concomitant]
     Active Substance: OXAZEPAM
     Indication: PRODUCT USED FOR UNKNOWN INDICATION
     Dosage: UNK, UNKNOWN
     Route: 065
     Dates: end: 20130912
  16. SEROQUEL XR [Interacting]
     Active Substance: QUETIAPINE FUMARATE
     Dosage: 500 MG, UNKNOWN
     Route: 065
     Dates: start: 20130912, end: 20130912
  17. LAEVOLAC [Suspect]
     Active Substance: LACTULOSE
     Indication: CONSTIPATION
     Dosage: 2 DF, UNKNOWN
     Route: 065
     Dates: start: 20130910, end: 20130925
  18. ROHYPNOL [Suspect]
     Active Substance: FLUNITRAZEPAM
     Indication: AGITATION
     Dosage: 1 MG, UNKNOWN
     Route: 065

REACTIONS (10)
  - Gallbladder polyp [Recovered/Resolved]
  - Renal failure [Recovered/Resolved]
  - Laboratory test abnormal [Recovered/Resolved]
  - Blood glucose increased [Recovered/Resolved]
  - Cholangitis [Recovered/Resolved]
  - Drug interaction [Unknown]
  - Dyspepsia [Recovered/Resolved]
  - Urinary tract infection [Recovered/Resolved]
  - Urinary retention [Recovered/Resolved]
  - Blood cholesterol increased [Recovered/Resolved]
